FAERS Safety Report 8773772 (Version 2)
Quarter: 2012Q4

REPORT INFORMATION
  Report Type: 
  Country: US (occurrence: US)
  Receive Date: 20120907
  Receipt Date: 20121008
  Transmission Date: 20130627
  Serious: Yes (Hospitalization, Other)
  Sender: FDA-Public Use
  Company Number: US-ROCHE-1116122

PATIENT
  Sex: Female

DRUGS (3)
  1. PEGASYS [Suspect]
     Indication: HEPATITIS C
     Route: 065
     Dates: start: 20120715, end: 20120901
  2. RIBAVIRIN [Suspect]
     Indication: HEPATITIS C
     Route: 048
     Dates: end: 20120829
  3. INCIVEK [Suspect]
     Indication: HEPATITIS C
     Route: 065
     Dates: end: 20120829

REACTIONS (7)
  - Hypersensitivity [Unknown]
  - Adverse reaction [Unknown]
  - Anaemia [Not Recovered/Not Resolved]
  - Neutropenia [Recovered/Resolved]
  - Thrombocytopenia [Not Recovered/Not Resolved]
  - Haematuria [Unknown]
  - Renal failure [Unknown]
